FAERS Safety Report 18251398 (Version 2)
Quarter: 2020Q4

REPORT INFORMATION
  Report Type: Report from Study
  Country: US (occurrence: US)
  Receive Date: 20200910
  Receipt Date: 20201230
  Transmission Date: 20210113
  Serious: No
  Sender: FDA-Public Use
  Company Number: NVSC2020US247480

PATIENT
  Sex: Male
  Weight: 68.03 kg

DRUGS (3)
  1. TREPROSTINIL. [Suspect]
     Active Substance: TREPROSTINIL
     Indication: PULMONARY ARTERIAL HYPERTENSION
     Dosage: UNK (20 NG/KG/MIN CONTINUOUS)
     Route: 042
     Dates: start: 20200902
  2. SILDENAFIL CITRATE. [Concomitant]
     Active Substance: SILDENAFIL CITRATE
     Indication: PRODUCT USED FOR UNKNOWN INDICATION
     Dosage: UNK
     Route: 065
  3. TREPROSTINIL. [Suspect]
     Active Substance: TREPROSTINIL
     Dosage: UNK (20 NG/KG/MIN)
     Route: 042

REACTIONS (4)
  - Decreased appetite [Unknown]
  - Oedema [Unknown]
  - Nausea [Unknown]
  - Headache [Unknown]
